FAERS Safety Report 19906716 (Version 1)
Quarter: 2021Q4

REPORT INFORMATION
  Report Type: Spontaneous
  Country: US (occurrence: US)
  Receive Date: 20211001
  Receipt Date: 20211001
  Transmission Date: 20220303
  Serious: Yes (Other)
  Sender: FDA-Public Use
  Company Number: US-ORGANON-O2109USA002347

PATIENT
  Sex: Female

DRUGS (1)
  1. NEXPLANON [Suspect]
     Active Substance: ETONOGESTREL
     Indication: Heavy menstrual bleeding
     Dosage: 1 IMPLANT, (DOSE/ FREQUENCY : 68 MG ROD), PLACED 3+ YEARS AGO

REACTIONS (7)
  - Device dislocation [Not Recovered/Not Resolved]
  - Device issue [Not Recovered/Not Resolved]
  - Complication of device removal [Not Recovered/Not Resolved]
  - Implant site scar [Unknown]
  - Incorrect product administration duration [Unknown]
  - Therapeutic product effective for unapproved indication [Unknown]
  - Device use issue [Unknown]

NARRATIVE: CASE EVENT DATE: 20210924
